FAERS Safety Report 7145741-0 (Version None)
Quarter: 2010Q4

REPORT INFORMATION
  Report Type: 
  Country: None (occurrence: None)
  Receive Date: 20101208
  Receipt Date: 20101203
  Transmission Date: 20110411
  Serious: Yes (Hospitalization)
  Sender: FDA-Public Use
  Company Number: B0687953A

PATIENT
  Sex: Male
  Weight: 90 kg

DRUGS (6)
  1. OFATUMUMAB [Suspect]
     Indication: MANTLE CELL LYMPHOMA
     Route: 042
     Dates: start: 20101018, end: 20101108
  2. BENDAMUSTIN [Suspect]
     Indication: MANTLE CELL LYMPHOMA
     Route: 042
     Dates: start: 20101018, end: 20101108
  3. MYELOSTIM [Concomitant]
     Route: 058
     Dates: start: 20101129
  4. TAZOCIN [Concomitant]
     Dosage: 4.5G THREE TIMES PER DAY
     Route: 042
     Dates: start: 20101129
  5. DIFLUCAN [Concomitant]
     Indication: ANTIFUNGAL TREATMENT
     Dosage: 400MG PER DAY
     Route: 042
     Dates: start: 20101129
  6. BACTRIM [Concomitant]
     Dosage: 1600MG TWO TIMES PER WEEK
     Route: 048
     Dates: start: 20101129

REACTIONS (1)
  - FEBRILE NEUTROPENIA [None]
